FAERS Safety Report 18174783 (Version 1)
Quarter: 2020Q3

REPORT INFORMATION
  Report Type: Spontaneous
  Country: US (occurrence: US)
  Receive Date: 20200820
  Receipt Date: 20200820
  Transmission Date: 20201103
  Serious: No
  Sender: FDA-Public Use
  Company Number: US-PFIZER INC-2020322307

PATIENT
  Age: 85 Year
  Sex: Female
  Weight: 72.57 kg

DRUGS (1)
  1. IBRANCE [Suspect]
     Active Substance: PALBOCICLIB
     Indication: BREAST CANCER METASTATIC
     Dosage: 100 MG, 1X/DAY (100 MG TABLET ONCE A DAY BY MOUTH )
     Route: 048

REACTIONS (3)
  - Product packaging difficult to open [Unknown]
  - Arthritis [Unknown]
  - Stab wound [Unknown]
